FAERS Safety Report 8850011 (Version 3)
Quarter: 2012Q4

REPORT INFORMATION
  Report Type: Report from Study
  Country: US (occurrence: US)
  Receive Date: 20121019
  Receipt Date: 20121112
  Transmission Date: 20130627
  Serious: Yes (Hospitalization)
  Sender: FDA-Public Use
  Company Number: US-ABBOTT-12P-163-0994477-00

PATIENT
  Age: 41 None
  Sex: Female
  Weight: 72.64 kg

DRUGS (15)
  1. HUMIRA [Suspect]
     Indication: RHEUMATOID ARTHRITIS
     Dosage: Weaning off
     Dates: start: 2006
  2. HUMIRA [Suspect]
     Dosage: In Apr 2012, 2 weeks were skipped.
  3. HUMIRA [Suspect]
     Dosage: Weaning off
  4. HUMIRA [Suspect]
     Dosage: Weaning off
  5. HUMIRA [Suspect]
     Dosage: Weaning off
     Dates: start: 20121003
  6. METHOTREXATE [Suspect]
     Indication: RHEUMATOID ARTHRITIS
     Dates: end: 20120429
  7. FOLIC ACID [Concomitant]
     Indication: PRODUCT USED FOR UNKNOWN INDICATION
  8. TOPAMAX [Concomitant]
     Indication: MIGRAINE
  9. JUNEL [Concomitant]
     Indication: CONTRACEPTION
  10. IRON [Concomitant]
     Indication: PRODUCT USED FOR UNKNOWN INDICATION
  11. PROTONIX [Concomitant]
     Indication: PRODUCT USED FOR UNKNOWN INDICATION
     Dosage: 40 mg daily
  12. VOLTAREN [Concomitant]
     Indication: RHEUMATOID ARTHRITIS
  13. ALLERGY SHOT [Concomitant]
     Indication: PRODUCT USED FOR UNKNOWN INDICATION
  14. IMITREX [Concomitant]
     Indication: MIGRAINE
  15. VICODIN [Concomitant]
     Indication: PAIN IN EXTREMITY

REACTIONS (15)
  - Blood potassium decreased [Recovered/Resolved]
  - Nephritis [Recovered/Resolved]
  - Intervertebral disc protrusion [Not Recovered/Not Resolved]
  - Arthralgia [Not Recovered/Not Resolved]
  - Hypoaesthesia [Not Recovered/Not Resolved]
  - Paraesthesia [Not Recovered/Not Resolved]
  - Oedema peripheral [Not Recovered/Not Resolved]
  - Pain in extremity [Not Recovered/Not Resolved]
  - Urinary tract infection [Recovered/Resolved]
  - Sinusitis [Recovered/Resolved]
  - Blood iron decreased [Recovered/Resolved]
  - Vitamin B12 decreased [Recovered/Resolved]
  - Abdominal pain upper [Recovered/Resolved]
  - Back pain [Recovered/Resolved]
  - Dyspnoea [Recovered/Resolved]
